FAERS Safety Report 4919746-1 (Version None)
Quarter: 2006Q1

REPORT INFORMATION
  Report Type: 
  Country: None (occurrence: None)
  Receive Date: 20060221
  Receipt Date: 20060209
  Transmission Date: 20060701
  Serious: Yes (Hospitalization)
  Sender: FDA-Public Use
  Company Number: 2005171118

PATIENT
  Age: 74 Year
  Sex: Female
  Weight: 32 kg

DRUGS (13)
  1. VFEND [Suspect]
     Indication: BRONCHOPULMONARY ASPERGILLOSIS
     Dosage: 300 MG (150 MG 2 IN 1 D) ORAL
     Route: 048
     Dates: start: 20050824, end: 20051031
  2. GASMOTIN (MOSAPRIDE CITRATE) [Concomitant]
  3. KARLICID (CLARITHORMYCIN) [Concomitant]
  4. MUCOSTA (REBAMIPIDE) [Concomitant]
  5. METHYCLOBAL (MECOBALAMIN) [Concomitant]
  6. NORVASC [Concomitant]
  7. BIOFERMIN (BACILLUS SUBTILIS, LACTOBACILLUS ADOPHILUS, STREPTOCOCCUS F [Concomitant]
  8. TOUGHMAC E (ENZYMES NOS) [Concomitant]
  9. HOCHUUEKKITOU (HERBAL EXTRACTS NOS) [Concomitant]
  10. AMOBAN (ZOPICLONE) [Concomitant]
  11. LOXONIN (LOXOPROFEN SODIUM) [Concomitant]
  12. PURSENNID (SENNA LEAF) [Concomitant]
  13. TIENAM (CILASTATIN, IMIPENEM) [Concomitant]

REACTIONS (2)
  - BACTERIAL INFECTION [None]
  - DELUSION [None]
